FAERS Safety Report 8006120-7 (Version None)
Quarter: 2011Q4

REPORT INFORMATION
  Report Type: 
  Country: None (occurrence: None)
  Receive Date: 20111226
  Receipt Date: 20111216
  Transmission Date: 20120403
  Serious: Yes (Other)
  Sender: FDA-Public Use
  Company Number: CA-PFIZER INC-2011251914

PATIENT
  Sex: Female
  Weight: 70.295 kg

DRUGS (7)
  1. VITALUX [Concomitant]
     Indication: MACULAR DEGENERATION
     Dosage: 2 A DAY
  2. RABEPRAZOLE [Concomitant]
     Indication: DYSPEPSIA
     Dosage: 20 MG, 1X/DAY
     Dates: start: 20100101
  3. XALATAN [Suspect]
     Indication: OPEN ANGLE GLAUCOMA
     Dosage: 1 GTT, 1X/DAY IN EACH EYE EACH NIGHT
     Route: 047
     Dates: start: 20000101
  4. ATORVASTATIN [Concomitant]
     Indication: BLOOD CHOLESTEROL
     Dosage: 40 MG, 1X/DAY
     Dates: start: 20050101
  5. ASPIRIN [Concomitant]
     Dosage: 81 MG, 1X/DAY
     Dates: start: 20090101
  6. RAMIPRIL [Concomitant]
     Indication: BLOOD PRESSURE
     Dosage: 10 MG, 1X/DAY
     Dates: start: 20050101
  7. METFORMIN [Concomitant]
     Indication: DIABETES MELLITUS
     Dosage: 500 MG, 3 A DAY
     Dates: start: 20000101

REACTIONS (3)
  - LASER THERAPY [None]
  - CATARACT [None]
  - VISUAL ACUITY REDUCED [None]
